FAERS Safety Report 9318070 (Version 1)
Quarter: 2013Q2

REPORT INFORMATION
  Report Type: Spontaneous
  Country: US (occurrence: US)
  Receive Date: 20130530
  Receipt Date: 20130530
  Transmission Date: 20140414
  Serious: No
  Sender: FDA-Public Use
  Company Number: US-GLAXOSMITHKLINE-A1003236A

PATIENT
  Age: 73 Year
  Sex: Female

DRUGS (5)
  1. VENTOLIN [Suspect]
     Indication: ASTHMA
     Dosage: 2PUFF THREE TIMES PER DAY
     Route: 055
     Dates: start: 2012
  2. BLOOD PRESSURE MEDICATION [Concomitant]
  3. VITAMIN [Concomitant]
     Indication: SUPPLEMENTATION THERAPY
  4. CARISOPRODOL [Concomitant]
  5. ENDOCET [Concomitant]

REACTIONS (3)
  - Productive cough [Recovered/Resolved]
  - Nasopharyngitis [Unknown]
  - Drug ineffective [Unknown]
